FAERS Safety Report 12855370 (Version 1)
Quarter: 2016Q4

REPORT INFORMATION
  Report Type: Spontaneous
  Country: CZ (occurrence: CZ)
  Receive Date: 20161017
  Receipt Date: 20161017
  Transmission Date: 20170207
  Serious: Yes (Hospitalization)
  Sender: FDA-Public Use
  Company Number: CZ-ELI_LILLY_AND_COMPANY-CZ201610002783

PATIENT
  Age: 82 Year
  Sex: Female

DRUGS (15)
  1. INDAP [Concomitant]
     Dosage: 1 DF, EACH EVENING
     Route: 065
  2. PREDNISON [Concomitant]
     Active Substance: PREDNISONE
     Dosage: 20 MG, EACH MORNING
     Route: 065
  3. CALCICHEW D3 [Concomitant]
     Active Substance: CALCIUM\CHOLECALCIFEROL
     Dosage: 1 DF, EACH EVENING
     Route: 065
  4. ISOPTIN SR [Concomitant]
     Active Substance: VERAPAMIL HYDROCHLORIDE
     Dosage: 2 MG, EACH MORNING
     Route: 065
  5. PANTOPRAZOL [Concomitant]
     Active Substance: PANTOPRAZOLE SODIUM
     Dosage: 1 DF, BID
     Route: 065
  6. MAGNOSOLV [Concomitant]
     Dosage: 1 DF, BID
     Route: 065
  7. DORETA [Concomitant]
     Dosage: UNK, UNKNOWN
     Route: 065
  8. MILURIT [Concomitant]
     Active Substance: ALLOPURINOL
     Dosage: 1 DF, QD
     Route: 065
  9. VIGANTOL                           /00318501/ [Concomitant]
     Active Substance: CHOLECALCIFEROL
     Dosage: UNK, UNKNOWN
     Route: 065
  10. LIPANOR [Concomitant]
     Active Substance: CIPROFIBRATE
     Dosage: 1 DF, EACH EVENING
     Route: 065
  11. SIOFOR [Concomitant]
     Active Substance: METFORMIN HYDROCHLORIDE
     Dosage: 1 DF, BID
     Route: 065
  12. FORSTEO [Suspect]
     Active Substance: TERIPARATIDE
     Indication: PRODUCT USED FOR UNKNOWN INDICATION
     Dosage: 20 UG, QD
     Route: 058
     Dates: start: 201509
  13. CILKANOL [Concomitant]
     Dosage: 1 DF, EACH EVENING
     Route: 065
  14. FERRO FOLGAMMA [Concomitant]
     Dosage: 1 DF, EACH MORNING
     Route: 065
  15. CIPRALEX [Concomitant]
     Active Substance: ESCITALOPRAM OXALATE
     Dosage: 0.5 DF, EACH MORNING
     Route: 065

REACTIONS (5)
  - Chronic kidney disease [Unknown]
  - Anaemia [Unknown]
  - Left ventricular failure [Unknown]
  - Pneumonia [Unknown]
  - Cystitis [Unknown]

NARRATIVE: CASE EVENT DATE: 201509
